FAERS Safety Report 7883655-9 (Version None)
Quarter: 2011Q4

REPORT INFORMATION
  Report Type: 
  Country: None (occurrence: None)
  Receive Date: 20111102
  Receipt Date: 20111027
  Transmission Date: 20120403
  Serious: Yes (Hospitalization, Other)
  Sender: FDA-Public Use
  Company Number: ES-PFIZER INC-2011261989

PATIENT
  Age: 53 Year
  Sex: Male

DRUGS (10)
  1. IRBESARTAN [Interacting]
     Indication: HYPERTENSION
     Dosage: 150 MG, 1X/DAY
     Route: 048
     Dates: start: 20070101
  2. OMEPRAZOLE [Concomitant]
     Dosage: 40 MG, 1X/DAY
     Dates: start: 20090101
  3. HUMALOG [Concomitant]
     Indication: TYPE 2 DIABETES MELLITUS
     Dosage: UNK
     Dates: start: 20090101
  4. NORVIR [Concomitant]
     Indication: HIV INFECTION CDC CATEGORY B3
     Dosage: 100 MG, 2X/DAY
     Route: 048
     Dates: start: 20090101
  5. LANTUS [Concomitant]
     Indication: TYPE 2 DIABETES MELLITUS
     Dosage: 34 IU, 1X/DAY
     Dates: start: 20090101
  6. ENALAPRIL MALEATE [Interacting]
     Indication: HYPERTENSION
     Dosage: 10 MG, 1X/DAY
     Route: 048
     Dates: start: 20070101
  7. PREDNISONE [Concomitant]
     Indication: CRYOGLOBULINAEMIA
     Dosage: 30 MG, UNK
     Dates: start: 20090101, end: 20110416
  8. ALDACTONE [Suspect]
     Indication: OEDEMA DUE TO HEPATIC DISEASE
     Dosage: 100 MG, 1X/DAY
     Route: 048
     Dates: start: 20110316, end: 20110416
  9. ALDACTONE [Interacting]
     Dosage: UNK
     Dates: start: 20110521, end: 20110601
  10. PREZISTA [Concomitant]
     Indication: HIV INFECTION CDC CATEGORY B3
     Dosage: 600 MG, 2X/DAY
     Route: 048
     Dates: start: 20090101

REACTIONS (11)
  - PARAESTHESIA [None]
  - RENAL IMPAIRMENT [None]
  - ASTHENIA [None]
  - HYPERKALAEMIA [None]
  - DRUG INTERACTION [None]
  - HYPOTENSION [None]
  - MUSCULAR WEAKNESS [None]
  - GASTROENTERITIS [None]
  - DYSPNOEA [None]
  - PERITONITIS BACTERIAL [None]
  - METABOLIC ACIDOSIS [None]
